FAERS Safety Report 14674525 (Version 1)
Quarter: 2018Q1

REPORT INFORMATION
  Report Type: Spontaneous
  Country: CA (occurrence: CA)
  Receive Date: 20180323
  Receipt Date: 20180323
  Transmission Date: 20180509
  Serious: Yes (Disabling, Other)
  Sender: FDA-Public Use
  Company Number: CA-BAYER-2018-051783

PATIENT
  Age: 24 Year
  Sex: Female
  Weight: 67.57 kg

DRUGS (2)
  1. MIRENA [Suspect]
     Active Substance: LEVONORGESTREL
     Indication: CONTRACEPTION
  2. MIRENA [Suspect]
     Active Substance: LEVONORGESTREL
     Indication: CONTRACEPTION
     Dosage: 20 MCG/24HR, CONT
     Route: 015

REACTIONS (9)
  - Intentional medical device removal by patient [Unknown]
  - Depression [Unknown]
  - Arthralgia [Unknown]
  - Emotional disorder [Unknown]
  - Aggression [Unknown]
  - Suicidal ideation [Unknown]
  - Negative thoughts [Unknown]
  - Panic attack [Unknown]
  - Premenstrual syndrome [Unknown]
